FAERS Safety Report 25716264 (Version 2)
Quarter: 2025Q3

REPORT INFORMATION
  Report Type: Spontaneous
  Country: US (occurrence: US)
  Receive Date: 20250822
  Receipt Date: 20250923
  Transmission Date: 20251021
  Serious: Yes (Other)
  Sender: NOVO NORDISK
  Company Number: US-NOVOPROD-1501215

PATIENT
  Age: 64 Year
  Sex: Female
  Weight: 112.65 kg

DRUGS (6)
  1. OZEMPIC [Suspect]
     Active Substance: SEMAGLUTIDE
     Indication: Type 2 diabetes mellitus
     Dosage: 1 MG, QW
     Route: 058
     Dates: start: 20240426
  2. OZEMPIC [Suspect]
     Active Substance: SEMAGLUTIDE
     Indication: Type 2 diabetes mellitus
     Dates: start: 20250226, end: 20250903
  3. OZEMPIC [Suspect]
     Active Substance: SEMAGLUTIDE
  4. OZEMPIC [Suspect]
     Active Substance: SEMAGLUTIDE
     Indication: Type 2 diabetes mellitus
     Dates: start: 20230712
  5. METFORMIN HYDROCHLORIDE [Concomitant]
     Active Substance: METFORMIN HYDROCHLORIDE
     Indication: Product used for unknown indication
  6. NOVOLOG MIX 70/30 [Concomitant]
     Active Substance: INSULIN ASPART
     Indication: Product used for unknown indication

REACTIONS (12)
  - Osteomyelitis chronic [Unknown]
  - Lower limb fracture [Unknown]
  - Sepsis [Unknown]
  - Surgery [Unknown]
  - Ankle fracture [Unknown]
  - Tremor [Not Recovered/Not Resolved]
  - COVID-19 [Unknown]
  - Arthralgia [Unknown]
  - Contusion [Unknown]
  - Product dispensing error [Unknown]
  - Product dispensing error [Unknown]
  - Expired product administered [Unknown]
